FAERS Safety Report 25859825 (Version 2)
Quarter: 2025Q4

REPORT INFORMATION
  Report Type: Spontaneous
  Country: EU (occurrence: EU)
  Receive Date: 20250929
  Receipt Date: 20251224
  Transmission Date: 20260118
  Serious: Yes (Other)
  Sender: JOHNSON AND JOHNSON
  Company Number: EU-JNJFOC-20250933603

PATIENT
  Sex: Female

DRUGS (1)
  1. DARZALEX [Suspect]
     Active Substance: DARATUMUMAB
     Indication: Nephrotic syndrome
     Dosage: CYCLES OF 28 DAYS, WEEKLY FIRST 2 CYCLES, BIWEEKLY CYCLES 3-6, ONCE EVERY 4 WEEKS CYCLE 7 AND ONWARD
     Route: 058

REACTIONS (5)
  - Hypogammaglobulinaemia [Unknown]
  - Drug ineffective [Unknown]
  - Off label use [Unknown]
  - Treatment noncompliance [Unknown]
  - Dysplasia [Unknown]
